FAERS Safety Report 11061782 (Version 1)
Quarter: 2015Q2

REPORT INFORMATION
  Report Type: Other
  Country: GB (occurrence: GB)
  Receive Date: 20150424
  Receipt Date: 20150424
  Transmission Date: 20150821
  Serious: Yes (Other)
  Sender: FDA-Public Use
  Company Number: GB-SHIRE-GB201503369

PATIENT
  Sex: Male

DRUGS (1)
  1. VPRIV [Suspect]
     Active Substance: VELAGLUCERASE ALFA
     Indication: PRODUCT USED FOR UNKNOWN INDICATION
     Dosage: 1600 IU (4 VIALS), OTHER (EVERY 4 WEEKS)
     Route: 041

REACTIONS (3)
  - Inappropriate schedule of drug administration [Unknown]
  - Fall [Recovered/Resolved]
  - Upper limb fracture [Unknown]
